FAERS Safety Report 18258448 (Version 1)
Quarter: 2020Q3

REPORT INFORMATION
  Report Type: Other
  Country: US (occurrence: US)
  Receive Date: 20200911
  Receipt Date: 20200911
  Transmission Date: 20201103
  Serious: No
  Sender: FDA-Public Use
  Company Number: US-LEADIANT BIOSCIENCES INC-2019STPI000626

PATIENT
  Sex: Female

DRUGS (7)
  1. LEVETIRACETAM. [Concomitant]
     Active Substance: LEVETIRACETAM
  2. VALSARTAN. [Concomitant]
     Active Substance: VALSARTAN
  3. METOPROLOL SUCCINATE. [Concomitant]
     Active Substance: METOPROLOL SUCCINATE
  4. DRONABINOL. [Concomitant]
     Active Substance: DRONABINOL
  5. MATULANE [Suspect]
     Active Substance: PROCARBAZINE HYDROCHLORIDE
     Indication: BRAIN NEOPLASM MALIGNANT
     Dosage: 100 MILLIGRAM, QD ON DAYS 8?21, EVERY 42 DAY CYCLE
     Route: 048
     Dates: start: 20190612
  6. MAXALT?MLT [Concomitant]
     Active Substance: RIZATRIPTAN BENZOATE
  7. ONDANSETRON [Concomitant]
     Active Substance: ONDANSETRON

REACTIONS (1)
  - Decreased appetite [Unknown]
